FAERS Safety Report 16152484 (Version 1)
Quarter: 2019Q2

REPORT INFORMATION
  Report Type: Spontaneous
  Country: FR (occurrence: FR)
  Receive Date: 20190403
  Receipt Date: 20190403
  Transmission Date: 20190711
  Serious: Yes (Hospitalization)
  Sender: FDA-Public Use
  Company Number: FR-PFIZER INC-2019136737

PATIENT
  Age: 83 Year
  Sex: Male
  Weight: 87 kg

DRUGS (2)
  1. CARBOPLATIN. [Suspect]
     Active Substance: CARBOPLATIN
     Indication: LUNG CANCER METASTATIC
     Dosage: 427.18 MG, EVERY 3 WEEKS(ADMINISTRATION ON 12FEB AND 05MAR)
     Route: 034
     Dates: start: 20190212, end: 20190305
  2. ETOPOSIDE. [Suspect]
     Active Substance: ETOPOSIDE
     Indication: LUNG CANCER METASTATIC
     Dosage: 480 MG, EVERY 3 WEEKS,(ADMINISTRATION ON 12FEB, 13FEB,14FEB AND 05MAR AND 06MAR)
     Route: 034
     Dates: start: 20190212, end: 20190306

REACTIONS (3)
  - Administration site extravasation [Recovered/Resolved]
  - Dyspnoea [Unknown]
  - Product use issue [Unknown]

NARRATIVE: CASE EVENT DATE: 201902
